FAERS Safety Report 8507548-9 (Version None)
Quarter: 2012Q3

REPORT INFORMATION
  Report Type: 
  Country: None (occurrence: None)
  Receive Date: 20120713
  Receipt Date: 20120703
  Transmission Date: 20120928
  Serious: Yes (Other)
  Sender: FDA-Public Use
  Company Number: IE-BIOGENIDEC-2011BI015805

PATIENT
  Sex: Female

DRUGS (2)
  1. ANTI-INFECTIVES [Concomitant]
  2. TYSABRI [Suspect]
     Indication: MULTIPLE SCLEROSIS
     Route: 042
     Dates: start: 20071017, end: 20100825

REACTIONS (1)
  - OPPORTUNISTIC INFECTION [None]
